FAERS Safety Report 7249192-X (Version None)
Quarter: 2011Q1

REPORT INFORMATION
  Report Type: 
  Country: None (occurrence: None)
  Receive Date: 20110128
  Receipt Date: 20101116
  Transmission Date: 20110831
  Serious: Yes (Hospitalization, Other)
  Sender: FDA-Public Use
  Company Number: US-BAYER-201023672NA

PATIENT
  Sex: Female
  Weight: 99.773 kg

DRUGS (1)
  1. YAZ [Suspect]
     Indication: CONTRACEPTION
     Dosage: UNK
     Route: 048
     Dates: start: 20070627, end: 20080428

REACTIONS (5)
  - PAIN IN EXTREMITY [None]
  - DEEP VEIN THROMBOSIS [None]
  - MUSCLE SPASMS [None]
  - OEDEMA PERIPHERAL [None]
  - EMBOLISM ARTERIAL [None]
